FAERS Safety Report 17021983 (Version 1)
Quarter: 2019Q4

REPORT INFORMATION
  Report Type: Spontaneous
  Country: FR (occurrence: FR)
  Receive Date: 20191112
  Receipt Date: 20191112
  Transmission Date: 20200122
  Serious: Yes (Hospitalization, Other)
  Sender: FDA-Public Use
  Company Number: FR-JAZZ-2019-FR-014206

PATIENT

DRUGS (2)
  1. XYREM [Suspect]
     Active Substance: SODIUM OXYBATE
     Indication: NARCOLEPSY
     Dosage: 3 MG, QD
     Route: 048
     Dates: start: 2005
  2. PITOLISANT HYDROCHLORIDE [Suspect]
     Active Substance: PITOLISANT HYDROCHLORIDE
     Indication: NARCOLEPSY
     Dosage: UNKNOWN
     Route: 048
     Dates: start: 20181004, end: 20181128

REACTIONS (2)
  - Depression [Recovering/Resolving]
  - Suicidal ideation [Recovering/Resolving]
